FAERS Safety Report 4963953-9 (Version None)
Quarter: 2006Q2

REPORT INFORMATION
  Report Type: 
  Country: None (occurrence: None)
  Receive Date: 20060405
  Receipt Date: 20060330
  Transmission Date: 20061013
  Serious: Yes (Disabling)
  Sender: FDA-Public Use
  Company Number: DE-MERCK-0604DEU00001

PATIENT
  Sex: Male

DRUGS (2)
  1. VIOXX [Suspect]
     Indication: BACK PAIN
     Route: 048
     Dates: start: 20020101
  2. VIOXX [Suspect]
     Indication: INTERVERTEBRAL DISC DISPLACEMENT
     Route: 048
     Dates: start: 20020101

REACTIONS (2)
  - TRANSIENT ISCHAEMIC ATTACK [None]
  - VERTEBROBASILAR INSUFFICIENCY [None]
